FAERS Safety Report 7983103 (Version 3)
Quarter: 2013Q4

REPORT INFORMATION
  Report Type: Spontaneous
  Country: US (occurrence: US)
  Receive Date: 20110609
  Receipt Date: 20131114
  Transmission Date: 20140711
  Serious: Yes (Other)
  Sender: FDA-Public Use
  Company Number: US-BAYER-2011-048373

PATIENT
  Age: 24 Year
  Sex: Female
  Weight: 87.08 kg

DRUGS (5)
  1. YAZ [Suspect]
     Dosage: UNK
     Dates: start: 2009
  2. RANITIDINE [Concomitant]
     Dosage: 150 MG, UNK
     Dates: start: 20090318, end: 20090629
  3. MULTIVITAMIN [Concomitant]
     Dosage: UNK
     Dates: start: 20090319, end: 20090501
  4. MULTIVITAMINS AND IRON [Concomitant]
     Dosage: UNK
     Dates: start: 20090304, end: 20090501
  5. PROCARDIA [Concomitant]
     Indication: HYPERTENSION
     Dosage: 30 MG, UNK
     Dates: start: 20090518, end: 20090724

REACTIONS (3)
  - Gallbladder disorder [None]
  - Cholecystitis chronic [None]
  - Pain [None]
